FAERS Safety Report 15121857 (Version 2)
Quarter: 2018Q4

REPORT INFORMATION
  Report Type: Spontaneous
  Country: US (occurrence: US)
  Receive Date: 20180709
  Receipt Date: 20181218
  Transmission Date: 20190204
  Serious: Yes (Hospitalization, Other)
  Sender: FDA-Public Use
  Company Number: US-OTSUKA-2018_016918

PATIENT
  Sex: Female

DRUGS (2)
  1. ABILIFY [Suspect]
     Active Substance: ARIPIPRAZOLE
     Indication: MAJOR DEPRESSION
     Dosage: 2 MG, QD
     Route: 065
     Dates: start: 2006
  2. ABILIFY [Suspect]
     Active Substance: ARIPIPRAZOLE
     Dosage: 20 MG, QD
     Route: 065
     Dates: end: 2014

REACTIONS (17)
  - Emotional distress [Unknown]
  - Sexual dysfunction [Recovered/Resolved]
  - Hospitalisation [Unknown]
  - Injury [Unknown]
  - Mental disorder [Recovered/Resolved]
  - Compulsive hoarding [Recovered/Resolved]
  - Hypersexuality [Unknown]
  - Suicidal ideation [Recovered/Resolved]
  - Obsessive-compulsive disorder [Recovered/Resolved]
  - Mental disorder [Unknown]
  - Personal relationship issue [Unknown]
  - Suicide attempt [Recovered/Resolved]
  - Compulsive sexual behaviour [Recovered/Resolved]
  - Condition aggravated [Recovered/Resolved]
  - Divorced [Unknown]
  - Economic problem [Unknown]
  - Gambling disorder [Recovered/Resolved]

NARRATIVE: CASE EVENT DATE: 2006
